FAERS Safety Report 8966614 (Version 4)
Quarter: 2013Q1

REPORT INFORMATION
  Report Type: Spontaneous
  Country: BE (occurrence: BE)
  Receive Date: 20121215
  Receipt Date: 20130131
  Transmission Date: 20140127
  Serious: Yes (Hospitalization, Other)
  Sender: FDA-Public Use
  Company Number: BE-AMGEN-BELSP2012080675

PATIENT
  Age: 73 Year
  Sex: Female
  Weight: 73.2 kg

DRUGS (1)
  1. PROLIA [Suspect]
     Indication: OSTEOPOROSIS POSTMENOPAUSAL
     Dosage: 1 UNK, UNK
     Dates: start: 20121006

REACTIONS (19)
  - Feeling abnormal [Recovered/Resolved]
  - Pain [Recovered/Resolved]
  - Paraesthesia [Recovered/Resolved]
  - Dysstasia [Unknown]
  - Cardiac disorder [Unknown]
  - Decreased appetite [Unknown]
  - Fatigue [Unknown]
  - Bone pain [Recovered/Resolved]
  - Malaise [Unknown]
  - Knee arthroplasty [Unknown]
  - Pain in extremity [Recovered/Resolved]
  - Hypocalcaemia [Unknown]
  - Hypomagnesaemia [Unknown]
  - Hypokalaemia [Unknown]
  - Sarcopenia [Unknown]
  - Muscular weakness [Unknown]
  - Diarrhoea [Recovering/Resolving]
  - Gait disturbance [Unknown]
  - Asthenia [Unknown]
